FAERS Safety Report 8935433 (Version 1)
Quarter: 2012Q4

REPORT INFORMATION
  Report Type: Spontaneous
  Country: US (occurrence: None)
  Receive Date: 20121128
  Receipt Date: 20121128
  Transmission Date: 20130627
  Serious: Yes (Hospitalization)
  Sender: FDA-Public Use
  Company Number: None

PATIENT
  Age: 77 Year
  Sex: Male
  Weight: 66.8 kg

DRUGS (14)
  1. COUMADIN [Suspect]
     Indication: ATRIAL FIBRILLATION
     Dosage: 5mg Q MON EVENING PO
     Route: 048
  2. LOVENOX [Suspect]
     Indication: ATRIAL FIBRILLATION
     Dosage: 60MG BID SQ
     Route: 058
  3. LOVENOX [Suspect]
     Indication: CHOLECYSTECTOMY
     Dosage: 60MG BID SQ
     Route: 058
  4. NORCO [Concomitant]
  5. CRESTOR [Concomitant]
  6. PEPCID [Concomitant]
  7. FLOMAX [Concomitant]
  8. SOTALOL [Concomitant]
  9. OMEPRAZOLE [Concomitant]
  10. CARDI XT [Concomitant]
  11. MVI [Concomitant]
  12. CA +D [Concomitant]
  13. OMEGA3 [Concomitant]
  14. SALINE NASAL [Concomitant]

REACTIONS (6)
  - Haemorrhagic anaemia [None]
  - Anaemia postoperative [None]
  - Chills [None]
  - Night sweats [None]
  - Intra-abdominal haemorrhage [None]
  - Ecchymosis [None]
